FAERS Safety Report 17220587 (Version 16)
Quarter: 2021Q2

REPORT INFORMATION
  Report Type: Spontaneous
  Country: US (occurrence: US)
  Receive Date: 20191231
  Receipt Date: 20210607
  Transmission Date: 20210716
  Serious: No
  Sender: FDA-Public Use
  Company Number: US-VERTEX PHARMACEUTICALS-2019-013016

PATIENT
  Age: 42 Year
  Sex: Female
  Weight: 57 kg

DRUGS (18)
  1. FIASP [Concomitant]
     Active Substance: INSULIN ASPART
     Dosage: UNK
  2. VITAMIN D [COLECALCIFEROL] [Concomitant]
     Active Substance: CHOLECALCIFEROL
     Dosage: UNK
  3. TRIKAFTA [Suspect]
     Active Substance: ELEXACAFTOR\IVACAFTOR\TEZACAFTOR
     Dosage: 2 ORANGE TABS EVERY EVENING, AND OCCASIONALLY TAKES THE BLUE TABLET
     Route: 048
  4. VITAMIN B12 [COBAMAMIDE] [Concomitant]
     Active Substance: COBAMAMIDE
     Dosage: UNK
  5. IRON [Concomitant]
     Active Substance: IRON
     Dosage: UNK
  6. XANAX [Concomitant]
     Active Substance: ALPRAZOLAM
     Dosage: UNK
  7. PULMOZYME [Concomitant]
     Active Substance: DORNASE ALFA
  8. ZOLOFT [Concomitant]
     Active Substance: SERTRALINE HYDROCHLORIDE
     Dosage: UNK
  9. TRIKAFTA [Suspect]
     Active Substance: ELEXACAFTOR\IVACAFTOR\TEZACAFTOR
     Dosage: 2 ORANGE TABS EVERY EVENING
     Route: 048
     Dates: start: 2021
  10. ADDERALL [Concomitant]
     Active Substance: AMPHETAMINE ASPARTATE\AMPHETAMINE SULFATE\DEXTROAMPHETAMINE SACCHARATE\DEXTROAMPHETAMINE SULFATE
     Dosage: 10 MG
     Route: 048
  11. EPIDUO [Concomitant]
     Active Substance: ADAPALENE\BENZOYL PEROXIDE
  12. INSULIN [Concomitant]
     Active Substance: INSULIN NOS
     Indication: DIABETES MELLITUS
  13. ZENPEP [Concomitant]
     Active Substance: PANCRELIPASE AMYLASE\PANCRELIPASE LIPASE\PANCRELIPASE PROTEASE
     Dosage: 20,000 UNITS
  14. MAGNESIUM [Concomitant]
     Active Substance: MAGNESIUM
     Dosage: UNK
  15. TRIKAFTA [Suspect]
     Active Substance: ELEXACAFTOR\IVACAFTOR\TEZACAFTOR
     Indication: CYSTIC FIBROSIS
     Dosage: 2 ORANGE TABS (100MG ELEXA/50MG TEZA/75MG IVA)AM, 1 BLUE TABLET (150MG IVA)PM
     Route: 048
     Dates: start: 20191125
  16. TRAZODONE [Concomitant]
     Active Substance: TRAZODONE HYDROCHLORIDE
     Dosage: 50 MG
  17. MYDAYIS [Concomitant]
     Active Substance: AMPHETAMINE ASPARTATE\AMPHETAMINE SULFATE\DEXTROAMPHETAMINE SACCHARATE\DEXTROAMPHETAMINE SULFATE
     Dosage: UNK
  18. LEXAPRO [Concomitant]
     Active Substance: ESCITALOPRAM OXALATE
     Dosage: 20 MG

REACTIONS (13)
  - Fatigue [Unknown]
  - Urinary tract infection [Recovered/Resolved]
  - Weight increased [Unknown]
  - Peripheral swelling [Not Recovered/Not Resolved]
  - Flatulence [Unknown]
  - Constipation [Recovered/Resolved]
  - Extra dose administered [Unknown]
  - Haemorrhoidal haemorrhage [Recovered/Resolved]
  - Night sweats [Unknown]
  - Joint swelling [Recovered/Resolved]
  - Pain in extremity [Recovered/Resolved]
  - Iron deficiency anaemia [Recovered/Resolved]
  - Productive cough [Not Recovered/Not Resolved]

NARRATIVE: CASE EVENT DATE: 2019
